FAERS Safety Report 8369899-0 (Version None)
Quarter: 2012Q2

REPORT INFORMATION
  Report Type: 
  Country: None (occurrence: None)
  Receive Date: 20120518
  Receipt Date: 20120510
  Transmission Date: 20120825
  Serious: Yes (Other)
  Sender: FDA-Public Use
  Company Number: BR-SANOFI-AVENTIS-2011SA024395

PATIENT
  Age: 39 Year
  Sex: Female
  Weight: 98 kg

DRUGS (3)
  1. PROGESTERONE [Concomitant]
     Route: 067
     Dates: start: 20110330
  2. ENOXAPARIN SODIUM [Suspect]
     Indication: THROMBOSIS PROPHYLAXIS
     Route: 065
     Dates: start: 20110101
  3. FOLIC ACID [Concomitant]
     Dosage: UNSPECIFIED AMOUNT ONCE A DAY IN THE AFTERNOON
     Dates: start: 20110101

REACTIONS (2)
  - MATERNAL EXPOSURE DURING PREGNANCY [None]
  - CARDIAC ARREST [None]
